FAERS Safety Report 15759646 (Version 1)
Quarter: 2018Q4

REPORT INFORMATION
  Report Type: Spontaneous
  Country: US (occurrence: US)
  Receive Date: 20181226
  Receipt Date: 20181226
  Transmission Date: 20190205
  Serious: Yes (Other)
  Sender: FDA-Public Use
  Company Number: US-CIPLA LTD.-2018US23977

PATIENT

DRUGS (3)
  1. IRINOTECAN [Suspect]
     Active Substance: IRINOTECAN
     Dosage: UNK, GIVEN IN COMBINATION WITH VINCRISTINE AND TEMOZOLOMIDE
     Route: 065
  2. BEVACIZUMAB. [Suspect]
     Active Substance: BEVACIZUMAB
     Indication: ANAPLASTIC ASTROCYTOMA
     Dosage: UNK
     Route: 065
  3. IRINOTECAN [Suspect]
     Active Substance: IRINOTECAN
     Indication: ANAPLASTIC ASTROCYTOMA
     Dosage: UNK
     Route: 065

REACTIONS (5)
  - Metastases to pleura [Recovered/Resolved]
  - Metastases to lung [Recovered/Resolved]
  - Pleural effusion [Unknown]
  - Metastases to chest wall [Recovered/Resolved]
  - Neoplasm recurrence [Unknown]
